FAERS Safety Report 11051024 (Version 1)
Quarter: 2015Q2

REPORT INFORMATION
  Report Type: Spontaneous
  Country: US (occurrence: US)
  Receive Date: 20150421
  Receipt Date: 20150421
  Transmission Date: 20150821
  Serious: No
  Sender: FDA-Public Use
  Company Number: US-TEVA-493199USA

PATIENT
  Sex: Female

DRUGS (1)
  1. HYDROCODONE W/IBUPROFEN [Suspect]
     Active Substance: HYDROCODONE\HYDROCODONE BITARTRATE\IBUPROFEN
     Dosage: 75/200 MG

REACTIONS (2)
  - Dysgeusia [Unknown]
  - Drug effect decreased [Unknown]
